FAERS Safety Report 16347647 (Version 4)
Quarter: 2019Q3

REPORT INFORMATION
  Report Type: Report from Study
  Country: US (occurrence: US)
  Receive Date: 20190523
  Receipt Date: 20190701
  Transmission Date: 20191004
  Serious: Yes (Hospitalization, Other)
  Sender: FDA-Public Use
  Company Number: US-BRISTOL-MYERS SQUIBB COMPANY-BMS-2019-049320

PATIENT
  Age: 75 Year
  Sex: Male
  Weight: 96.6 kg

DRUGS (8)
  1. AGLATIMAGENE BESADENOVEC [Suspect]
     Active Substance: AGLATIMAGENE BESADENOVEC
     Indication: ANAPLASTIC ASTROCYTOMA
     Dosage: 1 DOSAGE FORM = 2.5X10E11 VP
     Route: 065
     Dates: start: 20190208, end: 20190208
  2. NIVOLUMAB [Suspect]
     Active Substance: NIVOLUMAB
     Indication: ANAPLASTIC ASTROCYTOMA
     Dosage: 1440 MILLIGRAM
     Route: 065
     Dates: start: 20190227, end: 20190506
  3. TEMOZOLOMIDE. [Suspect]
     Active Substance: TEMOZOLOMIDE
     Indication: ANAPLASTIC ASTROCYTOMA
     Dosage: 6830 GRAM
     Route: 065
     Dates: start: 20190227, end: 20190511
  4. VALACICLOVIR [Suspect]
     Active Substance: VALACYCLOVIR HYDROCHLORIDE
     Indication: ANAPLASTIC ASTROCYTOMA
     Dosage: 84 GRAM
     Route: 065
     Dates: start: 20190210, end: 20190224
  5. LEVETIRACETAM. [Concomitant]
     Active Substance: LEVETIRACETAM
     Indication: PRODUCT USED FOR UNKNOWN INDICATION
     Dosage: UNK
     Route: 065
  6. ACETAMINOPHEN. [Concomitant]
     Active Substance: ACETAMINOPHEN
     Indication: PRODUCT USED FOR UNKNOWN INDICATION
     Dosage: UNK
     Route: 065
  7. DEXAMETHASONE. [Concomitant]
     Active Substance: DEXAMETHASONE
     Indication: PRODUCT USED FOR UNKNOWN INDICATION
     Dosage: UNK
     Route: 065
  8. LORAZEPAM. [Concomitant]
     Active Substance: LORAZEPAM
     Indication: PRODUCT USED FOR UNKNOWN INDICATION
     Dosage: UNK
     Route: 065

REACTIONS (2)
  - Seizure [Recovered/Resolved with Sequelae]
  - Subdural haematoma [Unknown]

NARRATIVE: CASE EVENT DATE: 20190514
